FAERS Safety Report 4624179-1 (Version None)
Quarter: 2005Q1

REPORT INFORMATION
  Report Type: 
  Country: None (occurrence: None)
  Receive Date: 20050331
  Receipt Date: 20050323
  Transmission Date: 20050727
  Serious: Yes (Other)
  Sender: FDA-Public Use
  Company Number: GB-GLAXOSMITHKLINE-B0375833A

PATIENT
  Age: 81 Year
  Sex: Female

DRUGS (4)
  1. CO-AMOXICLAV [Suspect]
     Indication: LOWER RESPIRATORY TRACT INFECTION
     Route: 048
     Dates: start: 20050307, end: 20050308
  2. DOXAZOSIN [Concomitant]
     Dosage: 4MG PER DAY
     Route: 048
     Dates: start: 19980907
  3. AMLODIPINE [Concomitant]
     Dosage: 10MG PER DAY
     Route: 048
     Dates: start: 20040501
  4. COMBIVENT [Concomitant]
     Dates: start: 20050221

REACTIONS (4)
  - CHROMATURIA [None]
  - FAECES PALE [None]
  - JAUNDICE [None]
  - NAUSEA [None]
